FAERS Safety Report 7357072-4 (Version None)
Quarter: 2011Q1

REPORT INFORMATION
  Report Type: 
  Country: None (occurrence: None)
  Receive Date: 20110317
  Receipt Date: 20100927
  Transmission Date: 20110831
  Serious: Yes (Hospitalization, Other)
  Sender: FDA-Public Use
  Company Number: US-BAYER-201021008NA

PATIENT
  Sex: Female
  Weight: 131.82 kg

DRUGS (7)
  1. OCELLA [Suspect]
     Indication: MENSTRUAL CYCLE MANAGEMENT
     Dosage: PHARMACY RECORDS: 22-SEP-2008 -24-SEP-2009
     Route: 048
     Dates: start: 20080101, end: 20090101
  2. ALBUTEROL [Concomitant]
  3. METFORMIN [Concomitant]
     Dosage: PHARMACY RECORDS: 30-NOV-2005 - 19-MAY-2010
     Route: 065
  4. GLUCOPHAGE [Concomitant]
     Dosage: 2000 MG (DAILY DOSE), QD,
  5. YASMIN [Suspect]
     Indication: MENSTRUAL CYCLE MANAGEMENT
     Dosage: PHARMACY RECORDS: 13 JUL 2005 -29 AUG 2008
     Route: 048
     Dates: start: 20030101, end: 20080101
  6. NEBIVOLOL [Concomitant]
     Dosage: PHARMACY RECORDS: 26-JUN-2008 -16 MAY-2010
     Route: 065
  7. YASMIN [Suspect]
     Indication: ACNE

REACTIONS (10)
  - ABDOMINAL PAIN UPPER [None]
  - VOMITING [None]
  - CHOLELITHIASIS [None]
  - WHITE BLOOD CELL COUNT INCREASED [None]
  - CHOLECYSTITIS CHRONIC [None]
  - BILIARY COLIC [None]
  - ABDOMINAL PAIN [None]
  - NAUSEA [None]
  - DIARRHOEA [None]
  - GALLBLADDER CHOLESTEROLOSIS [None]
